FAERS Safety Report 24606504 (Version 7)
Quarter: 2025Q1

REPORT INFORMATION
  Report Type: Spontaneous
  Country: BR (occurrence: BR)
  Receive Date: 20241112
  Receipt Date: 20250123
  Transmission Date: 20250408
  Serious: Yes (Other)
  Sender: NOVARTIS
  Company Number: BR-002147023-NVSC2024BR216232

PATIENT
  Sex: Female

DRUGS (5)
  1. CLOPIDOGREL BISULFATE [Suspect]
     Active Substance: CLOPIDOGREL BISULFATE
     Indication: Cardiac disorder
     Route: 065
  2. CLOPIDOGREL BISULFATE [Suspect]
     Active Substance: CLOPIDOGREL BISULFATE
     Route: 065
  3. INCLISIRAN [Suspect]
     Active Substance: INCLISIRAN
     Indication: Cardiac disorder
     Route: 065
  4. CLOPIDOGREL BISULFATE [Suspect]
     Active Substance: CLOPIDOGREL BISULFATE
     Indication: Product used for unknown indication
     Route: 065
  5. INCLISIRAN [Concomitant]
     Active Substance: INCLISIRAN
     Indication: Product used for unknown indication
     Route: 065

REACTIONS (11)
  - Myocardial infarction [Not Recovered/Not Resolved]
  - Angina unstable [Unknown]
  - Arteriosclerosis [Unknown]
  - Hypersensitivity [Unknown]
  - Urticaria [Unknown]
  - Pruritus [Unknown]
  - Oedema [Unknown]
  - Blister [Unknown]
  - Diverticulitis [Unknown]
  - Abdominal pain upper [Unknown]
  - Therapeutic product effect incomplete [Unknown]

NARRATIVE: CASE EVENT DATE: 20240101
